FAERS Safety Report 6478175-2 (Version None)
Quarter: 2009Q4

REPORT INFORMATION
  Report Type: 
  Country: None (occurrence: None)
  Receive Date: 20091207
  Receipt Date: 20091126
  Transmission Date: 20100525
  Serious: Yes (Death, Other)
  Sender: FDA-Public Use
  Company Number: JP-PFIZER INC-2009284489

PATIENT
  Age: 67 Year
  Sex: Male
  Weight: 70.5 kg

DRUGS (7)
  1. METHYLPREDNISOLONE AND METHYLPREDNISOLONE ACETATE AND METHYLPREDNISOLO [Suspect]
     Indication: IDIOPATHIC THROMBOCYTOPENIC PURPURA
     Dosage: UNK
     Route: 042
     Dates: start: 20061210
  2. IPRATROPIUM BROMIDE [Concomitant]
     Route: 055
  3. FLUTICASONE [Concomitant]
     Route: 055
  4. DICLOFENAC SODIUM [Concomitant]
     Dates: start: 20050101, end: 20061230
  5. AMPICILLIN SODIUM/SULBACTAM SODIUM [Concomitant]
     Route: 042
  6. MICAFUNGIN SODIUM [Concomitant]
     Route: 042
  7. VANCOMYCIN [Concomitant]

REACTIONS (2)
  - BRONCHOPULMONARY ASPERGILLOSIS [None]
  - MULTI-ORGAN FAILURE [None]
